FAERS Safety Report 8221822-5 (Version None)
Quarter: 2012Q1

REPORT INFORMATION
  Report Type: 
  Country: None (occurrence: None)
  Receive Date: 20120320
  Receipt Date: 20120313
  Transmission Date: 20120608
  Serious: Yes (Other)
  Sender: FDA-Public Use
  Company Number: US-PFIZER INC-2012021791

PATIENT
  Sex: Female

DRUGS (1)
  1. XALKORI [Suspect]
     Indication: NON-SMALL CELL LUNG CANCER STAGE IV
     Dosage: UNK

REACTIONS (3)
  - NON-SMALL CELL LUNG CANCER STAGE IV [None]
  - PERICARDIAL EFFUSION [None]
  - DISEASE PROGRESSION [None]
